FAERS Safety Report 7359614-1 (Version None)
Quarter: 2011Q1

REPORT INFORMATION
  Report Type: 
  Country: None (occurrence: None)
  Receive Date: 20110317
  Receipt Date: 20100121
  Transmission Date: 20110831
  Serious: No
  Sender: FDA-Public Use
  Company Number: US-PFIZER INC-2010008962

PATIENT
  Age: 53 Year
  Sex: Male

DRUGS (2)
  1. NORVASC [Suspect]
     Dosage: UNK
  2. TRIAMTERENE AND HYDROCHLOROTHIAZIDE [Suspect]
     Dosage: UNK

REACTIONS (3)
  - HEADACHE [None]
  - DRUG INEFFECTIVE [None]
  - HYPERTENSION [None]
